FAERS Safety Report 8080621-8 (Version None)
Quarter: 2012Q1

REPORT INFORMATION
  Report Type: 
  Country: None (occurrence: None)
  Receive Date: 20120130
  Receipt Date: 20120123
  Transmission Date: 20120608
  Serious: Yes (Other)
  Sender: FDA-Public Use
  Company Number: US-ABBOTT-12P-163-0896047-00

PATIENT
  Sex: Male
  Weight: 113.5 kg

DRUGS (8)
  1. MOBIC [Concomitant]
     Indication: OSTEOARTHRITIS
  2. DIFLOFENAC [Concomitant]
     Indication: PSORIATIC ARTHROPATHY
  3. NEURONTIN [Concomitant]
     Indication: MUSCULOSKELETAL PAIN
  4. MOBIC [Concomitant]
     Indication: SPINAL OSTEOARTHRITIS
  5. HUMIRA [Suspect]
     Indication: PSORIATIC ARTHROPATHY
     Dates: start: 20110625, end: 20111101
  6. CYMBALTA [Concomitant]
     Indication: MUSCULOSKELETAL PAIN
  7. CYMBALTA [Concomitant]
     Indication: DEPRESSION
  8. MOBIC [Concomitant]
     Indication: PSORIATIC ARTHROPATHY

REACTIONS (10)
  - MENINGITIS [None]
  - HEADACHE [None]
  - SCAR [None]
  - RASH PAPULAR [None]
  - PYREXIA [None]
  - CHILLS [None]
  - PARAESTHESIA [None]
  - RASH [None]
  - HYPERHIDROSIS [None]
  - HERPES ZOSTER [None]
